FAERS Safety Report 8000290-2 (Version None)
Quarter: 2011Q4

REPORT INFORMATION
  Report Type: 
  Country: None (occurrence: None)
  Receive Date: 20111222
  Receipt Date: 20111215
  Transmission Date: 20120403
  Serious: Yes (Hospitalization)
  Sender: FDA-Public Use
  Company Number: JP-BAYER-200912831BYL

PATIENT
  Age: 75 Year
  Sex: Male
  Weight: 63 kg

DRUGS (8)
  1. CORTRIL [Concomitant]
     Indication: ADRENALECTOMY
     Dosage: 50 MG, QD
     Route: 048
  2. NEXAVAR [Suspect]
     Dosage: 400 MG, QOD
     Route: 048
     Dates: start: 20090912, end: 20091106
  3. PERSANTIN [Concomitant]
     Dosage: 300 MG, QD
     Route: 048
  4. NEXAVAR [Suspect]
     Dosage: 400 MG, QOD
     Route: 048
     Dates: start: 20091211, end: 20100507
  5. AMARYL [Concomitant]
     Dosage: 5 MG, QD
     Route: 048
  6. NEXAVAR [Suspect]
     Dosage: 400 MG, QOD
     Route: 048
     Dates: start: 20090822, end: 20090903
  7. NEXAVAR [Suspect]
     Indication: RENAL CELL CARCINOMA
     Dosage: 400 MG, BID
     Route: 048
     Dates: start: 20090728, end: 20090807
  8. BASEN [Concomitant]
     Dosage: 0.9 MG, QD
     Route: 048

REACTIONS (11)
  - CARDIAC FAILURE [None]
  - PALMAR-PLANTAR ERYTHRODYSAESTHESIA SYNDROME [None]
  - FATIGUE [None]
  - ATRIAL FIBRILLATION [None]
  - NEURALGIA [None]
  - RASH [None]
  - HYPERTENSION [None]
  - COUGH [None]
  - SUBCUTANEOUS ABSCESS [None]
  - HERPES ZOSTER [None]
  - ATRIAL THROMBOSIS [None]
